FAERS Safety Report 5117454-8 (Version None)
Quarter: 2006Q3

REPORT INFORMATION
  Report Type: 
  Country: None (occurrence: None)
  Receive Date: 20060926
  Receipt Date: 20060905
  Transmission Date: 20061208
  Serious: Yes (Hospitalization)
  Sender: FDA-Public Use
  Company Number: US200609001804

PATIENT
  Sex: Female

DRUGS (1)
  1. CYMBALTA [Suspect]
     Dosage: 60 MG, DAILY (1/D), UNK
     Dates: start: 20060327, end: 20060406

REACTIONS (2)
  - HEPATIC ENZYME INCREASED [None]
  - SUICIDAL BEHAVIOUR [None]
